FAERS Safety Report 4616504-2 (Version None)
Quarter: 2005Q1

REPORT INFORMATION
  Report Type: 
  Country: None (occurrence: None)
  Receive Date: 20050318
  Receipt Date: 20050307
  Transmission Date: 20050727
  Serious: Yes (Death, Hospitalization)
  Sender: FDA-Public Use
  Company Number: AZAUS200500003

PATIENT
  Age: 64 Year
  Sex: Male
  Weight: 123.832 kg

DRUGS (14)
  1. VIDAZA [Suspect]
     Indication: MYELODYSPLASTIC SYNDROME
     Dosage: 75 MG/M2 (175 MG, DAILY), SUBCUTANEOUS
     Route: 058
     Dates: start: 20050103, end: 20050107
  2. ANZEMET (DOLASETRON MESILATE) [Concomitant]
  3. AVANDIA [Concomitant]
  4. ZOCOR [Concomitant]
  5. MIRAPEX [Concomitant]
  6. CLONAZEPAM [Concomitant]
  7. COREG [Concomitant]
  8. ASPIRIN TAB [Concomitant]
  9. ADVAIR DISKUS 100/50 [Concomitant]
  10. MAXAIR [Concomitant]
  11. HYDROCHLOROTHIAZIDE [Concomitant]
  12. FOLIC ACID [Concomitant]
  13. VITAMIN E [Concomitant]
  14. VITAMIN C (ASCORBIC ACID) [Concomitant]

REACTIONS (21)
  - ALANINE AMINOTRANSFERASE INCREASED [None]
  - ASPARTATE AMINOTRANSFERASE INCREASED [None]
  - CHEST PAIN [None]
  - CHILLS [None]
  - DISSEMINATED INTRAVASCULAR COAGULATION [None]
  - FLANK PAIN [None]
  - GASTROINTESTINAL HAEMORRHAGE [None]
  - HAEMATEMESIS [None]
  - HAEMATURIA [None]
  - HAEMODIALYSIS [None]
  - HAEMOLYSIS [None]
  - HYPERBILIRUBINAEMIA [None]
  - HYPOTENSION [None]
  - HYPOXIA [None]
  - LABORATORY TEST ABNORMAL [None]
  - MENTAL STATUS CHANGES [None]
  - OLIGURIA [None]
  - PROCEDURAL COMPLICATION [None]
  - RENAL FAILURE ACUTE [None]
  - THERAPY NON-RESPONDER [None]
  - TRANSFUSION REACTION [None]
